FAERS Safety Report 8911694 (Version 1)
Quarter: 2012Q4

REPORT INFORMATION
  Report Type: 
  Country: CH (occurrence: CH)
  Receive Date: 20121116
  Receipt Date: 20121116
  Transmission Date: 20130627
  Serious: Yes (Death)
  Sender: FDA-Public Use
  Company Number: CH-BAYER-2012-119598

PATIENT
  Age: 63 Year
  Sex: Male

DRUGS (5)
  1. ASPIRIN CARDIO [Suspect]
     Dosage: 100 mg, QD
     Route: 048
     Dates: start: 20120914, end: 20120917
  2. FRAXIFORTE [Suspect]
     Dosage: 0.8 ml, QD
     Route: 058
     Dates: end: 20120917
  3. CRESTOR [Concomitant]
     Dosage: 10 mg, QD
     Route: 048
     Dates: end: 20120917
  4. PROCORALAN [Concomitant]
     Dosage: 7.5 mg, BID
     Route: 048
  5. ALDACTONE [SPIRONOLACTONE] [Concomitant]
     Dosage: 50 mg, BID
     Dates: end: 20120917

REACTIONS (2)
  - Anaemia [Fatal]
  - Peritoneal haemorrhage [Fatal]
